FAERS Safety Report 9450413 (Version 1)
Quarter: 2013Q3

REPORT INFORMATION
  Report Type: Report from Study
  Country: AU (occurrence: AU)
  Receive Date: 20130809
  Receipt Date: 20130809
  Transmission Date: 20140515
  Serious: Yes (Other)
  Sender: FDA-Public Use
  Company Number: AU-PFIZER INC-2013227952

PATIENT
  Age: 9 Year
  Sex: 0

DRUGS (6)
  1. CYCLOPHOSPHAMIDE [Suspect]
     Indication: CONGENITAL APLASTIC ANAEMIA
     Dosage: UNK
  2. FLUDARABINE PHOSPHATE [Suspect]
     Indication: CONGENITAL APLASTIC ANAEMIA
     Dosage: UNK
  3. TREOSULFAN [Suspect]
     Indication: CONGENITAL APLASTIC ANAEMIA
     Dosage: UNK
  4. ANTITHYMOCYTE GLOBULIN [Suspect]
     Indication: CONGENITAL APLASTIC ANAEMIA
     Dosage: UNK
  5. PREDNISOLONE [Suspect]
     Indication: CONGENITAL APLASTIC ANAEMIA
     Dosage: UNK
  6. PREDNISOLONE [Suspect]
     Indication: CHRONIC GRAFT VERSUS HOST DISEASE

REACTIONS (1)
  - Osteonecrosis [Not Recovered/Not Resolved]
